FAERS Safety Report 26142704 (Version 2)
Quarter: 2025Q4

REPORT INFORMATION
  Report Type: Spontaneous
  Country: EU (occurrence: EU)
  Receive Date: 20251211
  Receipt Date: 20251226
  Transmission Date: 20260118
  Serious: Yes (Hospitalization, Other)
  Sender: AMGEN
  Company Number: EU-CELLTRION INC.-2025SI043333

PATIENT
  Age: 27 Year
  Sex: Male

DRUGS (2)
  1. INFLIXIMAB [Suspect]
     Active Substance: INFLIXIMAB
     Indication: Crohn^s disease
     Dosage: UNK
     Route: 065
  2. WEZLANA [Suspect]
     Active Substance: USTEKINUMAB-AUUB
     Indication: Crohn^s disease
     Dosage: UNK
     Route: 065

REACTIONS (1)
  - Autoimmune hepatitis [Unknown]

NARRATIVE: CASE EVENT DATE: 20231111
